FAERS Safety Report 20690208 (Version 1)
Quarter: 2022Q2

REPORT INFORMATION
  Report Type: Report from Study
  Country: US (occurrence: US)
  Receive Date: 20220408
  Receipt Date: 20220408
  Transmission Date: 20220721
  Serious: Yes (Other)
  Sender: FDA-Public Use
  Company Number: US-ABBVIE-22K-163-4348971-00

PATIENT

DRUGS (1)
  1. RINVOQ [Suspect]
     Active Substance: UPADACITINIB
     Indication: Product used for unknown indication
     Route: 048
     Dates: start: 202001

REACTIONS (6)
  - Cerebrovascular accident [Unknown]
  - Pulmonary embolism [Unknown]
  - Dizziness [Unknown]
  - Vestibular neuronitis [Unknown]
  - Herpes zoster [Unknown]
  - Thrombosis [Unknown]

NARRATIVE: CASE EVENT DATE: 20200417
